FAERS Safety Report 5868610-2 (Version None)
Quarter: 2008Q3

REPORT INFORMATION
  Report Type: 
  Country: None (occurrence: None)
  Receive Date: 20080903
  Receipt Date: 20080826
  Transmission Date: 20090109
  Serious: Yes (Death)
  Sender: FDA-Public Use
  Company Number: JP-BAYER-200811934BYL

PATIENT
  Age: 81 Year
  Sex: Male

DRUGS (2)
  1. CIPROFLOXACIN HCL [Suspect]
     Indication: PYREXIA
     Dosage: TOTAL DAILY DOSE: 400 MG
     Route: 048
     Dates: start: 20080811, end: 20080820
  2. CLARITHROMYCIN [Concomitant]
     Indication: PYREXIA
     Dosage: TOTAL DAILY DOSE: 400 MG
     Route: 048
     Dates: start: 20080809, end: 20080810

REACTIONS (2)
  - HEPATIC FUNCTION ABNORMAL [None]
  - RENAL IMPAIRMENT [None]
